FAERS Safety Report 24726950 (Version 5)
Quarter: 2025Q3

REPORT INFORMATION
  Report Type: Spontaneous
  Country: AU (occurrence: AU)
  Receive Date: 20241212
  Receipt Date: 20250717
  Transmission Date: 20251020
  Serious: Yes (Hospitalization, Other)
  Sender: OTSUKA
  Company Number: AU-OTSUKA-2024_032351

PATIENT
  Age: 38 Year
  Sex: Female
  Weight: 80 kg

DRUGS (21)
  1. ABILIFY [Suspect]
     Active Substance: ARIPIPRAZOLE
     Indication: Depression
     Route: 065
  2. ABILIFY [Suspect]
     Active Substance: ARIPIPRAZOLE
     Indication: Anxiety
     Dosage: 20 MG, QD IN THE MORNING FOR 2 WEEKS
     Route: 065
  3. ABILIFY [Suspect]
     Active Substance: ARIPIPRAZOLE
     Indication: Mental disorder
  4. ABILIFY [Suspect]
     Active Substance: ARIPIPRAZOLE
     Indication: Delusional disorder, unspecified type
  5. ABILIFY MAINTENA [Suspect]
     Active Substance: ARIPIPRAZOLE
     Indication: Depression
     Route: 030
     Dates: start: 20230308, end: 202310
  6. ABILIFY MAINTENA [Suspect]
     Active Substance: ARIPIPRAZOLE
     Indication: Anxiety
     Route: 030
  7. DIAZEPAM [Concomitant]
     Active Substance: DIAZEPAM
     Indication: Anxiety
     Dosage: 5 MG, QD (1 TABLET AT NIGHT)
     Route: 065
  8. MELATONIN [Concomitant]
     Active Substance: MELATONIN
     Indication: Sleep disorder
     Dosage: 2 MG, QD (1 TABLET AT NIGHT)
     Route: 065
  9. BETAMIN [THIAMINE HYDROCHLORIDE] [Concomitant]
     Indication: Vitamin supplementation
     Dosage: 100 MG, QD, (1 TABLET IN THE MORNING)
     Route: 065
  10. BETAMIN [THIAMINE HYDROCHLORIDE] [Concomitant]
     Route: 065
  11. LATUDA [Concomitant]
     Active Substance: LURASIDONE HYDROCHLORIDE
     Indication: Product used for unknown indication
     Route: 065
  12. VALIUM [Concomitant]
     Active Substance: DIAZEPAM
     Indication: Product used for unknown indication
     Route: 065
  13. SERTRALINE [Concomitant]
     Active Substance: SERTRALINE HYDROCHLORIDE
     Indication: Product used for unknown indication
     Dosage: 100 MG, QD
     Route: 065
  14. NALTREXONE [Concomitant]
     Active Substance: NALTREXONE
     Indication: Product used for unknown indication
     Route: 065
  15. MAGNESIUM ASPARTATE [Concomitant]
     Active Substance: MAGNESIUM ASPARTATE
     Indication: Product used for unknown indication
     Dosage: 500 MG, QD
     Route: 065
  16. CHOLECALCIFEROL [Concomitant]
     Active Substance: CHOLECALCIFEROL
     Indication: Product used for unknown indication
     Route: 065
  17. OLANZAPINE [Concomitant]
     Active Substance: OLANZAPINE
     Indication: Product used for unknown indication
     Route: 065
  18. IBUPROFEN [Concomitant]
     Active Substance: IBUPROFEN
     Indication: Product used for unknown indication
     Dosage: 400 MG, TID
     Route: 065
  19. LORAZEPAM [Concomitant]
     Active Substance: LORAZEPAM
     Indication: Product used for unknown indication
     Route: 065
  20. CAMPRAL [Concomitant]
     Active Substance: ACAMPROSATE CALCIUM
     Indication: Product used for unknown indication
     Dosage: 2 DF, TID, (333MG 2 TABLET)
     Route: 065
  21. FLEURSTAT [Concomitant]
     Indication: Product used for unknown indication
     Dosage: UNK, QD
     Route: 065

REACTIONS (46)
  - Dependence [Unknown]
  - Substance use disorder [Unknown]
  - Abortion spontaneous [Unknown]
  - Psychotic disorder [Unknown]
  - Suicidal ideation [Unknown]
  - Tardive dyskinesia [Unknown]
  - Dystonia [Unknown]
  - Syncope [Unknown]
  - Suicide attempt [Unknown]
  - Post-traumatic stress disorder [Unknown]
  - Loss of personal independence in daily activities [Unknown]
  - Aphonia [Unknown]
  - Facial discomfort [Unknown]
  - Delusional disorder, unspecified type [Unknown]
  - Belligerence [Unknown]
  - Alcohol use disorder [Unknown]
  - Emotional disorder [Unknown]
  - Illness [Not Recovered/Not Resolved]
  - Nervous system disorder [Unknown]
  - Obsessive-compulsive disorder [Unknown]
  - Protrusion tongue [Unknown]
  - Withdrawal syndrome [Unknown]
  - Heart rate irregular [Unknown]
  - Mental disorder [Not Recovered/Not Resolved]
  - Disorientation [Unknown]
  - Persecutory delusion [Unknown]
  - Confusional state [Unknown]
  - Panic reaction [Unknown]
  - Hostility [Unknown]
  - Muscle twitching [Unknown]
  - Bradycardia [Unknown]
  - Aggression [Unknown]
  - Compulsions [Unknown]
  - Gambling [Unknown]
  - Agitation [Unknown]
  - Insomnia [Unknown]
  - Dizziness [Unknown]
  - Tremor [Unknown]
  - Impulsive behaviour [Unknown]
  - Weight increased [Unknown]
  - Restlessness [Unknown]
  - Fatigue [Unknown]
  - Dyskinesia [Unknown]
  - Refusal of treatment by patient [Unknown]
  - Off label use [Unknown]
  - Maternal exposure during pregnancy [Unknown]

NARRATIVE: CASE EVENT DATE: 20240101
